FAERS Safety Report 12350670 (Version 1)
Quarter: 2016Q2

REPORT INFORMATION
  Report Type: Spontaneous
  Country: DE (occurrence: DE)
  Receive Date: 20160510
  Receipt Date: 20160510
  Transmission Date: 20160815
  Serious: Yes (Other)
  Sender: FDA-Public Use
  Company Number: DE-009507513-1605DEU003759

PATIENT
  Age: 72 Year
  Sex: Male

DRUGS (1)
  1. INTRON A [Suspect]
     Active Substance: INTERFERON ALFA-2B
     Indication: ADJUVANT THERAPY
     Dosage: 3X3 MIO UNITS PER WEEK
     Route: 042
     Dates: start: 201410, end: 201412

REACTIONS (4)
  - Metastases to pelvis [Unknown]
  - Metastases to lymph nodes [Unknown]
  - Metastases to heart [Unknown]
  - Metastases to lung [Unknown]

NARRATIVE: CASE EVENT DATE: 201412
